FAERS Safety Report 18329906 (Version 1)
Quarter: 2020Q3

REPORT INFORMATION
  Report Type: Spontaneous
  Country: DE (occurrence: DE)
  Receive Date: 20200930
  Receipt Date: 20200930
  Transmission Date: 20201103
  Serious: Yes (Other)
  Sender: FDA-Public Use
  Company Number: DE-PFIZER INC-2020373990

PATIENT
  Age: 87 Year
  Sex: Female

DRUGS (1)
  1. UNACID (AMPICILLIN SODIUM\SULBACTAM SODIUM) [Suspect]
     Active Substance: AMPICILLIN SODIUM\SULBACTAM SODIUM
     Dosage: 1.5 G, 3X/DAY
     Route: 042

REACTIONS (2)
  - Flushing [Unknown]
  - Hypertension [Unknown]
